FAERS Safety Report 23235618 (Version 4)
Quarter: 2024Q4

REPORT INFORMATION
  Report Type: Spontaneous
  Country: US (occurrence: US)
  Receive Date: 20231128
  Receipt Date: 20241014
  Transmission Date: 20250114
  Serious: No
  Sender: PFIZER
  Company Number: US-PFIZER INC-PV202300190482

PATIENT
  Age: 86 Year
  Sex: Female

DRUGS (2)
  1. IBRANCE [Suspect]
     Active Substance: PALBOCICLIB
     Dosage: 100 MG TAB DAILY, DAYS 1-21 OF 28-DAY CYCLE
     Route: 048
  2. IBRANCE [Suspect]
     Active Substance: PALBOCICLIB
     Dosage: 75 MG TABLET TAKE FOR 21 DAYS THEN 7 DAYS OFF

REACTIONS (3)
  - COVID-19 [Unknown]
  - Product dispensing error [Unknown]
  - Circumstance or information capable of leading to medication error [Unknown]
